FAERS Safety Report 10300405 (Version 1)
Quarter: 2014Q3

REPORT INFORMATION
  Report Type: Spontaneous
  Country: US (occurrence: US)
  Receive Date: 20140713
  Receipt Date: 20140713
  Transmission Date: 20150326
  Serious: No
  Sender: FDA-Public Use
  Company Number: US-TEVA-494332USA

PATIENT
  Age: 37 Year
  Sex: Female
  Weight: 81.72 kg

DRUGS (3)
  1. DORAX [Concomitant]
     Indication: ACNE
  2. PLAN B ONE-STEP [Suspect]
     Active Substance: LEVONORGESTREL
     Indication: POST COITAL CONTRACEPTION
     Dosage: 1.5 MILLIGRAM DAILY;
     Route: 048
     Dates: start: 20140622, end: 20140622
  3. DORAX [Concomitant]
     Indication: POLYCYSTIC OVARIES
     Dosage: 200 MILLIGRAM DAILY;
     Route: 048

REACTIONS (3)
  - Dysmenorrhoea [Not Recovered/Not Resolved]
  - Menstruation irregular [Not Recovered/Not Resolved]
  - Breast pain [Not Recovered/Not Resolved]

NARRATIVE: CASE EVENT DATE: 20140628
